FAERS Safety Report 19860677 (Version 2)
Quarter: 2021Q3

REPORT INFORMATION
  Report Type: Report from Study
  Country: CZ (occurrence: CZ)
  Receive Date: 20210921
  Receipt Date: 20210925
  Transmission Date: 20211014
  Serious: Yes (Hospitalization)
  Sender: FDA-Public Use
  Company Number: CZ-ROCHE-2909362

PATIENT
  Age: 77 Year
  Sex: Male
  Weight: 103.8 kg

DRUGS (16)
  1. DEXAMETHASONE. [Concomitant]
     Active Substance: DEXAMETHASONE
     Dates: start: 20210907, end: 20210907
  2. TORVACARD [Concomitant]
     Active Substance: ATORVASTATIN CALCIUM
     Dates: start: 2012
  3. DITHIADEN [Concomitant]
     Active Substance: BISULEPIN
     Dates: start: 20210831, end: 20210831
  4. GLOFITAMAB. [Suspect]
     Active Substance: GLOFITAMAB
     Indication: B-CELL LYMPHOMA REFRACTORY
     Dosage: ON 07/SEP/2021, THE PATIENT RECEIVED MOST RECENT DOSE 10 MG PRIOR TO SAE, AT 2:00 PM TO 10:40 PM.
     Route: 042
     Dates: start: 20210831
  5. OBINUTUZUMAB. [Suspect]
     Active Substance: OBINUTUZUMAB
     Indication: B-CELL LYMPHOMA REFRACTORY
     Dosage: ON 31/AUG/2021, THE PATIENT RECEIVED MOST RECENT DOSE 1000 MG PRIOR TO SAE, AT 1:40 PM.
     Route: 042
     Dates: start: 20210824
  6. DEXAMETHASONE. [Concomitant]
     Active Substance: DEXAMETHASONE
     Dates: start: 20210831, end: 20210831
  7. COTRIMOXAZOL AL FORTE [Concomitant]
     Active Substance: SULFAMETHOXAZOLE\TRIMETHOPRIM
     Dates: start: 2017
  8. PARALEN (CZECH REPUBLIC) [Concomitant]
     Dates: start: 20210907, end: 20210907
  9. PARACETAMOL [Concomitant]
     Active Substance: ACETAMINOPHEN
     Dates: start: 20210831, end: 20210831
  10. PARACETAMOL [Concomitant]
     Active Substance: ACETAMINOPHEN
     Dates: start: 20210824, end: 20210824
  11. DEXAMETHASONE. [Concomitant]
     Active Substance: DEXAMETHASONE
     Dates: start: 20210824, end: 20210824
  12. TOCILIZUMAB. [Suspect]
     Active Substance: TOCILIZUMAB
     Indication: CYTOKINE RELEASE SYNDROME
     Route: 042
     Dates: start: 20210908
  13. DITHIADEN [Concomitant]
     Active Substance: BISULEPIN
     Dates: start: 20210907, end: 20210907
  14. OMEPRAZOL [Concomitant]
     Active Substance: OMEPRAZOLE
     Dates: start: 2012
  15. DITHIADEN [Concomitant]
     Active Substance: BISULEPIN
     Dates: start: 20210824, end: 20210824
  16. CARAMLO [Concomitant]
     Active Substance: AMLODIPINE BESYLATE\CANDESARTAN CILEXETIL
     Indication: HYPERTENSION
     Dates: start: 2012

REACTIONS (1)
  - C-reactive protein increased [Unknown]

NARRATIVE: CASE EVENT DATE: 20210908
